FAERS Safety Report 15785863 (Version 1)
Quarter: 2019Q1

REPORT INFORMATION
  Report Type: Spontaneous
  Country: US (occurrence: US)
  Receive Date: 20190101
  Receipt Date: 20190101
  Transmission Date: 20190417
  Serious: Yes (Disabling)
  Sender: FDA-Public Use
  Company Number: None

PATIENT
  Age: 30 Year
  Sex: Female
  Weight: 90 kg

DRUGS (1)
  1. LAMOTRIGINE. [Suspect]
     Active Substance: LAMOTRIGINE
     Indication: BIPOLAR DISORDER
     Dosage: ?          QUANTITY:1 MG;?
     Route: 048

REACTIONS (9)
  - Back pain [None]
  - Vomiting [None]
  - Insomnia [None]
  - Suicidal ideation [None]
  - Abdominal pain upper [None]
  - Diarrhoea [None]
  - Rhinorrhoea [None]
  - Eating disorder [None]
  - Nausea [None]

NARRATIVE: CASE EVENT DATE: 20190101
